FAERS Safety Report 11490376 (Version 1)
Quarter: 2015Q3

REPORT INFORMATION
  Report Type: Spontaneous
  Country: CA (occurrence: CA)
  Receive Date: 20150909
  Receipt Date: 20150909
  Transmission Date: 20151125
  Serious: Yes (Disabling)
  Sender: FDA-Public Use
  Company Number: CA-TEVA-592045ACC

PATIENT
  Age: 18 Year
  Sex: Male
  Weight: 73 kg

DRUGS (70)
  1. CEFTAZIDIME FOR INJECTION, USP [Concomitant]
     Route: 030
  2. CEFTRIAXONE FOR INJECTION USP [Concomitant]
     Route: 030
  3. GRANISETRON [Concomitant]
     Active Substance: GRANISETRON
  4. GRANULOCYTE COLONY STIMULATING FACTOR (G-CSF) [Concomitant]
  5. INSULIN [Concomitant]
     Active Substance: INSULIN NOS
  6. MIRTAZAPINE. [Concomitant]
     Active Substance: MIRTAZAPINE
  7. SUCRALFATE. [Concomitant]
     Active Substance: SUCRALFATE
  8. VANCOMYCIN [Concomitant]
     Active Substance: VANCOMYCIN
  9. ZINECARD [Concomitant]
     Active Substance: DEXRAZOXANE HYDROCHLORIDE
     Route: 042
  10. VINCRISTINE SULFATE INJECTION USP [Suspect]
     Active Substance: VINCRISTINE SULFATE
     Indication: ACUTE LYMPHOCYTIC LEUKAEMIA
     Dosage: ONCE
     Route: 042
  11. CALCIUM CARBONATE. [Concomitant]
     Active Substance: CALCIUM CARBONATE
  12. DIMENHYDRINATE. [Concomitant]
     Active Substance: DIMENHYDRINATE
  13. DOCUSATE [Concomitant]
     Active Substance: DOCUSATE
  14. METHOTREXATE INJECTION, USP [Concomitant]
     Active Substance: METHOTREXATE
     Route: 013
  15. SODIUM [Concomitant]
     Active Substance: SODIUM
  16. AMOXICILLIN/CLAVULANIC ACID [Concomitant]
     Active Substance: AMOXICILLIN\CLAVULANIC ACID
  17. CIPROFLOXACIN. [Concomitant]
     Active Substance: CIPROFLOXACIN
  18. CYTARABINE INJECTION [Concomitant]
     Active Substance: CYTARABINE
  19. ESOMEPRAZOLE [Concomitant]
     Active Substance: ESOMEPRAZOLE
  20. FENOFIBRATE. [Concomitant]
     Active Substance: FENOFIBRATE
  21. FENTANYL. [Concomitant]
     Active Substance: FENTANYL
  22. LORAZEPAM. [Concomitant]
     Active Substance: LORAZEPAM
  23. MELATONIN [Concomitant]
     Active Substance: MELATONIN
  24. PREGABALIN. [Concomitant]
     Active Substance: PREGABALIN
  25. ZOPICLONE [Concomitant]
     Active Substance: ZOPICLONE
  26. VINCRISTINE SULFATE INJECTION USP [Suspect]
     Active Substance: VINCRISTINE SULFATE
     Route: 042
  27. CHOLECALCIFEROL [Concomitant]
     Active Substance: CHOLECALCIFEROL
  28. DICYCLOMINE HYDROCHLORIDE USP [Concomitant]
  29. FAMCICLOVIR. [Concomitant]
     Active Substance: FAMCICLOVIR
  30. HYDROMORPHONE [Concomitant]
     Active Substance: HYDROMORPHONE
  31. MERCAPTOPURINE. [Concomitant]
     Active Substance: MERCAPTOPURINE
  32. PANTOPRAZOLE [Concomitant]
     Active Substance: PANTOPRAZOLE SODIUM
  33. POLYETHYLENE GLYCOL [Concomitant]
     Active Substance: POLYETHYLENE GLYCOLS
  34. TRAZODONE [Concomitant]
     Active Substance: TRAZODONE HYDROCHLORIDE
  35. VINCRISTINE SULFATE INJECTION USP [Suspect]
     Active Substance: VINCRISTINE SULFATE
     Route: 042
  36. ACETAMINOPHEN. [Concomitant]
     Active Substance: ACETAMINOPHEN
  37. ASPARAGINASE (E.COLI) [Concomitant]
  38. ETOPOSIDE INJECTION, USP [Concomitant]
     Active Substance: ETOPOSIDE
  39. FAMOTIDINE. [Concomitant]
     Active Substance: FAMOTIDINE
  40. FUROSEMIDE. [Concomitant]
     Active Substance: FUROSEMIDE
  41. KETAMINE HYDROCHLORIDE INJECTION USP [Concomitant]
     Active Substance: KETAMINE HYDROCHLORIDE
     Route: 030
  42. MESNA. [Concomitant]
     Active Substance: MESNA
  43. PIPERACILLIN/TAZOBACTAM [Concomitant]
     Active Substance: PIPERACILLIN SODIUM\TAZOBACTAM SODIUM
  44. PREDNISONE. [Concomitant]
     Active Substance: PREDNISONE
  45. RANITIDINE [Concomitant]
     Active Substance: RANITIDINE\RANITIDINE HYDROCHLORIDE
  46. SEVELAMER [Concomitant]
     Active Substance: SEVELAMER
  47. ACYCLOVIR. [Concomitant]
     Active Substance: ACYCLOVIR
  48. ALUMINUM HYDROXIDE/MAGNESIUM HYDROXIDE [Concomitant]
  49. ATRIANCE [Concomitant]
     Active Substance: NELARABINE
     Route: 042
  50. CODEINE [Concomitant]
     Active Substance: CODEINE
  51. CYCLOPHOSPHAMIDE. [Concomitant]
     Active Substance: CYCLOPHOSPHAMIDE
  52. FLUCONAZOLE. [Concomitant]
     Active Substance: FLUCONAZOLE
  53. LANSOPRAZOLE. [Concomitant]
     Active Substance: LANSOPRAZOLE
  54. MEROPENEM. [Concomitant]
     Active Substance: MEROPENEM
     Route: 042
  55. CITALOPRAM [Concomitant]
     Active Substance: CITALOPRAM HYDROBROMIDE
  56. DEXAMETHASONE. [Concomitant]
     Active Substance: DEXAMETHASONE
  57. DOXORUBICIN HYDROCHLORIDE INJECTION [Concomitant]
     Active Substance: DOXORUBICIN HYDROCHLORIDE
  58. ENOXAPARIN [Concomitant]
     Active Substance: ENOXAPARIN
  59. LEUCOVORIN. [Concomitant]
     Active Substance: LEUCOVORIN
  60. METHOTREXATE [Concomitant]
     Active Substance: METHOTREXATE
  61. METHYLPREDNISOLONE NOS [Concomitant]
     Active Substance: METHYLPREDNISOLONE OR METHYLPREDNISOLONE ACETATE
  62. MORPHINE [Concomitant]
     Active Substance: MORPHINE
  63. NOREPINEPHRINE [Concomitant]
     Active Substance: NOREPINEPHRINE\NOREPINEPHRINE BITARTRATE
  64. ONDANSETRON [Concomitant]
     Active Substance: ONDANSETRON
  65. TOBRAMYCIN INJECTION USP [Concomitant]
  66. HYDROCORTISONE. [Concomitant]
     Active Substance: HYDROCORTISONE
  67. ALLOPURINOL. [Concomitant]
     Active Substance: ALLOPURINOL
  68. METRONIDAZOLE. [Concomitant]
     Active Substance: METRONIDAZOLE
  69. PENTAMIDINE ISETHIONATE INJ 300MG/VIAL BP [Concomitant]
  70. SUPRAX [Concomitant]
     Active Substance: CEFIXIME

REACTIONS (3)
  - Condition aggravated [Not Recovered/Not Resolved]
  - Peripheral motor neuropathy [Not Recovered/Not Resolved]
  - Peripheral sensory neuropathy [Not Recovered/Not Resolved]
